FAERS Safety Report 25034100 (Version 1)
Quarter: 2025Q1

REPORT INFORMATION
  Report Type: Spontaneous
  Country: US (occurrence: US)
  Receive Date: 20250304
  Receipt Date: 20250304
  Transmission Date: 20250408
  Serious: No
  Sender: ALEXION PHARMACEUTICALS
  Company Number: US-AstraZeneca-CH-00818363A

PATIENT

DRUGS (1)
  1. SYMBICORT [Suspect]
     Active Substance: BUDESONIDE\FORMOTEROL FUMARATE DIHYDRATE
     Route: 065

REACTIONS (19)
  - Drug ineffective [Unknown]
  - Illness [Unknown]
  - Nausea [Unknown]
  - Product use issue [Unknown]
  - Gastroenteritis [Unknown]
  - Pharyngitis [Unknown]
  - Hypersensitivity [Unknown]
  - Sputum increased [Unknown]
  - Cough [Unknown]
  - Arthralgia [Unknown]
  - Muscle spasms [Unknown]
  - Vision blurred [Unknown]
  - Chest discomfort [Unknown]
  - Dyspnoea [Unknown]
  - Lacrimation increased [Unknown]
  - Nasal congestion [Unknown]
  - Musculoskeletal chest pain [Unknown]
  - Headache [Unknown]
  - Sleep disorder [Unknown]
